FAERS Safety Report 8716853 (Version 3)
Quarter: 2014Q3

REPORT INFORMATION
  Report Type: Spontaneous
  Country: US (occurrence: US)
  Receive Date: 20120810
  Receipt Date: 20140919
  Transmission Date: 20150326
  Serious: Yes (Hospitalization)
  Sender: FDA-Public Use
  Company Number: US-BAYER-2012-078662

PATIENT
  Age: 49 Year
  Sex: Female
  Weight: 88.44 kg

DRUGS (4)
  1. PERCOCET [Concomitant]
     Active Substance: ACETAMINOPHEN\OXYCODONE HYDROCHLORIDE
     Indication: PAIN
     Dosage: 5 MG, PRN EVERY 6 HOURS
     Route: 048
  2. OMEPRAZOLE. [Concomitant]
     Active Substance: OMEPRAZOLE
     Dosage: 20 MG, QD
  3. ROBAXIN [Concomitant]
     Active Substance: METHOCARBAMOL
     Indication: PAIN
     Dosage: 500 MG, PRN EVERY 12 HOURS
  4. YAZ [Suspect]
     Active Substance: DROSPIRENONE\ETHINYL ESTRADIOL
     Dosage: UNK
     Dates: start: 20100408, end: 20110310

REACTIONS (10)
  - Quality of life decreased [None]
  - Thrombosis [None]
  - Injury [Recovered/Resolved]
  - Emotional distress [None]
  - Deep vein thrombosis [Recovering/Resolving]
  - Anhedonia [None]
  - Anxiety [None]
  - Fear of disease [None]
  - Pulmonary embolism [Recovered/Resolved]
  - Pain [Recovered/Resolved]

NARRATIVE: CASE EVENT DATE: 201103
